FAERS Safety Report 9036367 (Version 1)
Quarter: 2013Q1

REPORT INFORMATION
  Report Type: Spontaneous
  Country: US (occurrence: None)
  Receive Date: 20130123
  Receipt Date: 20130123
  Transmission Date: 20140127
  Serious: Yes (Life-Threatening)
  Sender: FDA-Public Use
  Company Number: None

PATIENT
  Age: 15 Year
  Sex: Female
  Weight: 68.04 kg

DRUGS (1)
  1. MINOCYCLINE [Suspect]
     Indication: ACNE
     Route: 048
     Dates: start: 20120925, end: 20121014

REACTIONS (8)
  - Headache [None]
  - Nausea [None]
  - Vomiting [None]
  - Fatigue [None]
  - Photophobia [None]
  - Papilloedema [None]
  - Benign intracranial hypertension [None]
  - Malaise [None]
